FAERS Safety Report 5256897-9 (Version None)
Quarter: 2007Q1

REPORT INFORMATION
  Report Type: 
  Country: None (occurrence: None)
  Receive Date: 20070307
  Receipt Date: 20070226
  Transmission Date: 20070707
  Serious: Yes (Other)
  Sender: FDA-Public Use
  Company Number: PHBS2005DK10662

PATIENT
  Age: 69 Year
  Sex: Male
  Weight: 75 kg

DRUGS (2)
  1. AREDIA [Suspect]
     Indication: MULTIPLE MYELOMA
     Dosage: 90 MG, QMO
     Route: 042
     Dates: start: 20021018, end: 20030110
  2. ZOMETA [Suspect]
     Indication: MULTIPLE MYELOMA
     Dosage: 4 MG, QMO
     Route: 042
     Dates: start: 20030207, end: 20050103

REACTIONS (4)
  - BONE DISORDER [None]
  - OSTEOLYSIS [None]
  - OSTEONECROSIS [None]
  - PROSTHESIS IMPLANTATION [None]
